FAERS Safety Report 8062544-3 (Version None)
Quarter: 2012Q1

REPORT INFORMATION
  Report Type: 
  Country: None (occurrence: None)
  Receive Date: 20120120
  Receipt Date: 20120117
  Transmission Date: 20120608
  Serious: Yes (Hospitalization)
  Sender: FDA-Public Use
  Company Number: DL2012-0046

PATIENT
  Age: 19 Year
  Sex: Female

DRUGS (3)
  1. MIFEPRISTONE (MIFEPREX) [Suspect]
     Indication: ABORTION INDUCED
     Dosage: 200 MG, ORAL
     Route: 048
     Dates: start: 20111231
  2. MISOPROSTOL [Suspect]
     Dosage: 800 MCG, BUCCAL
     Route: 002
     Dates: start: 20120101
  3. DOXYCYCLINE [Concomitant]

REACTIONS (6)
  - HAEMOGLOBIN DECREASED [None]
  - TRANSFUSION REACTION [None]
  - PULMONARY OEDEMA [None]
  - PYREXIA [None]
  - HAEMATOCRIT DECREASED [None]
  - HAEMORRHAGE [None]
